FAERS Safety Report 7399407-2 (Version None)
Quarter: 2011Q1

REPORT INFORMATION
  Report Type: 
  Country: None (occurrence: None)
  Receive Date: 20110329
  Receipt Date: 20110322
  Transmission Date: 20110831
  Serious: Yes (Death, Hospitalization)
  Sender: FDA-Public Use
  Company Number: UTC-005863

PATIENT
  Age: 21 Year
  Sex: Female
  Weight: 65 kg

DRUGS (3)
  1. TYVASO [Suspect]
     Dosage: INHALATION
     Route: 055
     Dates: start: 20100312
  2. ADCIRCA [Concomitant]
  3. LETAIRIS [Concomitant]

REACTIONS (1)
  - DYSPNOEA [None]
